FAERS Safety Report 18856149 (Version 1)
Quarter: 2021Q1

REPORT INFORMATION
  Report Type: Report from Study
  Country: GB (occurrence: GB)
  Receive Date: 20210206
  Receipt Date: 20210206
  Transmission Date: 20210420
  Serious: Yes (Hospitalization)
  Sender: FDA-Public Use
  Company Number: GB-EMD SERONO-E2B_90082187

PATIENT
  Age: 17 Year
  Sex: Male

DRUGS (1)
  1. SOMATROPIN. [Suspect]
     Active Substance: SOMATROPIN
     Indication: PRODUCT USED FOR UNKNOWN INDICATION
     Route: 058

REACTIONS (7)
  - Seizure [Unknown]
  - Hospitalisation [Unknown]
  - Unevaluable event [Unknown]
  - Injection site haemorrhage [Unknown]
  - Headache [Unknown]
  - Therapy interrupted [Unknown]
  - Injection site bruising [Unknown]

NARRATIVE: CASE EVENT DATE: 202010
